FAERS Safety Report 25597619 (Version 8)
Quarter: 2025Q4

REPORT INFORMATION
  Report Type: Spontaneous
  Country: EU (occurrence: EU)
  Receive Date: 20250723
  Receipt Date: 20251105
  Transmission Date: 20260117
  Serious: Yes (Death, Life-Threatening, Hospitalization, Other)
  Sender: BRISTOL-MYERS SQUIBB COMPANY
  Company Number: EU-JNJFOC-20250717883

PATIENT
  Age: 71 Year
  Sex: Female

DRUGS (8)
  1. LENALIDOMIDE [Suspect]
     Active Substance: LENALIDOMIDE
     Indication: Plasma cell myeloma
     Dosage: MED KIT NO. 72774
     Route: 048
     Dates: start: 20190513, end: 20250604
  2. BORTEZOMIB [Suspect]
     Active Substance: BORTEZOMIB
     Indication: Plasma cell myeloma
     Dosage: 1 MG/M2, MED KIT NO.51645-07
     Route: 058
     Dates: start: 20190513, end: 20191025
  3. DEXAMETHASONE [Suspect]
     Active Substance: DEXAMETHASONE
     Indication: Plasma cell myeloma
     Dosage: MED KIT NO. 42179
     Route: 048
     Dates: start: 20190513, end: 20250604
  4. DARATUMUMAB [Suspect]
     Active Substance: DARATUMUMAB
     Indication: Plasma cell myeloma
     Dosage: MED KIT NO. 26627
     Route: 058
     Dates: start: 20190513, end: 20250528
  5. FURAZIDINE [Concomitant]
     Active Substance: FURAZIDINE
     Indication: Hypertension
     Dates: start: 202507, end: 202507
  6. TRAMADOL [Concomitant]
     Active Substance: TRAMADOL
     Indication: Analgesic therapy
     Dates: start: 202507, end: 202507
  7. METAMIZOLE SODIUM [Concomitant]
     Active Substance: METAMIZOLE SODIUM
     Indication: Analgesic therapy
     Dates: start: 202507, end: 202507
  8. POTASSIUM CHLORIDE [Concomitant]
     Active Substance: POTASSIUM CHLORIDE
     Indication: Hypokalaemia
     Dates: start: 202507, end: 202507

REACTIONS (5)
  - Intestinal adenocarcinoma [Recovering/Resolving]
  - Gastroenteritis [Recovered/Resolved with Sequelae]
  - Gastrointestinal obstruction [Recovered/Resolved with Sequelae]
  - Respiratory failure [Fatal]
  - Cardiac arrest [Unknown]

NARRATIVE: CASE EVENT DATE: 20250708
